FAERS Safety Report 9601200 (Version 1)
Quarter: 2013Q4

REPORT INFORMATION
  Report Type: Report from Study
  Country: US (occurrence: US)
  Receive Date: 20131005
  Receipt Date: 20131005
  Transmission Date: 20140711
  Serious: Yes (Other)
  Sender: FDA-Public Use
  Company Number: US-ROCHE-1282573

PATIENT
  Age: 64 Year
  Sex: Female
  Weight: 56.75 kg

DRUGS (2)
  1. RITUXAN [Suspect]
     Indication: NEUROMYELITIS OPTICA
     Route: 042
     Dates: start: 2005, end: 2011
  2. PREDNISONE [Suspect]
     Indication: PNEUMONIA
     Route: 048
     Dates: start: 2007

REACTIONS (8)
  - Immunodeficiency [Not Recovered/Not Resolved]
  - Hip fracture [Recovered/Resolved]
  - Depression [Unknown]
  - Blood disorder [Unknown]
  - Coagulopathy [Unknown]
  - Cough [Unknown]
  - Poor quality sleep [Unknown]
  - Fatigue [Unknown]
